FAERS Safety Report 24562682 (Version 4)
Quarter: 2025Q1

REPORT INFORMATION
  Report Type: Spontaneous
  Country: US (occurrence: US)
  Receive Date: 20241029
  Receipt Date: 20250123
  Transmission Date: 20250409
  Serious: Yes (Life-Threatening, Hospitalization, Other)
  Sender: BRISTOL-MYERS SQUIBB COMPANY
  Company Number: US-BRISTOL-MYERS SQUIBB COMPANY-2024-168106

PATIENT
  Age: 32 Year
  Sex: Female

DRUGS (1)
  1. REBLOZYL [Suspect]
     Active Substance: LUSPATERCEPT-AAMT
     Indication: Thalassaemia beta
     Route: 058
     Dates: start: 2024

REACTIONS (15)
  - Peripheral coldness [Unknown]
  - Hypoaesthesia [Unknown]
  - Vision blurred [Unknown]
  - Gait disturbance [Unknown]
  - Dizziness [Unknown]
  - Confusional state [Unknown]
  - Syncope [Unknown]
  - Memory impairment [Unknown]
  - White blood cell count increased [Unknown]
  - Insomnia [Unknown]
  - Cystitis [Unknown]
  - Pain in extremity [Unknown]
  - Chest pain [Unknown]
  - Headache [Unknown]
  - Amenorrhoea [Unknown]

NARRATIVE: CASE EVENT DATE: 20240101
